FAERS Safety Report 13658730 (Version 1)
Quarter: 2017Q2

REPORT INFORMATION
  Report Type: Spontaneous
  Country: US (occurrence: US)
  Receive Date: 20170615
  Receipt Date: 20170615
  Transmission Date: 20170830
  Serious: Yes (Other)
  Sender: FDA-Public Use
  Company Number: None

PATIENT
  Age: 49 Year
  Sex: Male
  Weight: 83.25 kg

DRUGS (4)
  1. EUCRISA [Suspect]
     Active Substance: CRISABOROLE
     Indication: SEBORRHOEIC DERMATITIS
     Dosage: ?          OTHER STRENGTH:2%;?
     Route: 061
     Dates: start: 20170606, end: 20170615
  2. HYDROCORTISONE VALERATE. [Concomitant]
     Active Substance: HYDROCORTISONE VALERATE
  3. HYLATOPIC PLUS CREAM [Concomitant]
  4. EUCRISA [Suspect]
     Active Substance: CRISABOROLE
     Indication: ECZEMA
     Dosage: ?          OTHER STRENGTH:2%;?
     Route: 061
     Dates: start: 20170606, end: 20170615

REACTIONS (1)
  - Application site pain [None]

NARRATIVE: CASE EVENT DATE: 20170615
